FAERS Safety Report 7763461-6 (Version None)
Quarter: 2011Q3

REPORT INFORMATION
  Report Type: 
  Country: None (occurrence: None)
  Receive Date: 20110920
  Receipt Date: 20110916
  Transmission Date: 20111222
  Serious: Yes (Hospitalization)
  Sender: FDA-Public Use
  Company Number: SE-PFIZER INC-2011219249

PATIENT
  Age: 71 Year
  Sex: Male

DRUGS (10)
  1. BACLOFEN [Concomitant]
  2. PULMICORT [Concomitant]
     Dosage: UNK
     Route: 055
  3. ACETAMINOPHEN [Concomitant]
  4. ACETYLCYSTEINE [Concomitant]
     Dosage: UNK
  5. BETAPRED [Suspect]
     Dosage: 25 MG/24H, UNK
     Route: 048
     Dates: start: 20110710, end: 20110712
  6. BEHEPAN [Concomitant]
     Dosage: 1 MG/ML, UNK
  7. COMBIVENT [Concomitant]
     Dosage: 0.5MG/2.5MG
  8. OMEPRAZOLE [Concomitant]
     Dosage: UNK
  9. CLINDAMYCIN HCL [Suspect]
     Indication: INFECTION
     Dosage: UNK
     Route: 048
     Dates: start: 20110708, end: 20110710
  10. CLINDAMYCIN HCL [Suspect]
     Indication: DECUBITUS ULCER

REACTIONS (3)
  - RASH GENERALISED [None]
  - RASH [None]
  - HYPERGLYCAEMIA [None]
